FAERS Safety Report 14365961 (Version 2)
Quarter: 2018Q2

REPORT INFORMATION
  Report Type: Report from Study
  Country: US (occurrence: US)
  Receive Date: 20180109
  Receipt Date: 20180522
  Transmission Date: 20180711
  Serious: Yes (Hospitalization, Other)
  Sender: FDA-Public Use
  Company Number: US-ARIAD-2016US006765

PATIENT
  Age: 77 Year
  Sex: Male
  Weight: 85 kg

DRUGS (5)
  1. PONATINIB [Suspect]
     Active Substance: PONATINIB
     Indication: CHRONIC MYELOID LEUKAEMIA
     Dosage: 45 MG, QD
     Route: 048
     Dates: start: 20160623, end: 20160721
  2. PONATINIB [Suspect]
     Active Substance: PONATINIB
     Dosage: 30 MG, QD
     Route: 048
  3. PONATINIB [Suspect]
     Active Substance: PONATINIB
     Dosage: 45 MG, QD
     Route: 048
     Dates: start: 20160721
  4. PONATINIB [Suspect]
     Active Substance: PONATINIB
     Dosage: 15 MG, QD
     Route: 048
     Dates: start: 20160623
  5. PONATINIB [Suspect]
     Active Substance: PONATINIB
     Dosage: 30 MG, QD
     Route: 048

REACTIONS (27)
  - Arthralgia [Unknown]
  - Decreased appetite [Unknown]
  - Head injury [Recovered/Resolved]
  - Fall [Unknown]
  - Bladder pain [Unknown]
  - Micturition urgency [Unknown]
  - Urinary incontinence [Unknown]
  - Cardiac murmur [Unknown]
  - Eye movement disorder [Unknown]
  - Facial paralysis [Unknown]
  - Blood pressure increased [Unknown]
  - Headache [Unknown]
  - Fatigue [Unknown]
  - Asthenia [Unknown]
  - Haemoglobin abnormal [Unknown]
  - Abdominal pain [Unknown]
  - Subdural haematoma [Unknown]
  - White blood cell count decreased [Unknown]
  - Musculoskeletal stiffness [Unknown]
  - Night sweats [Unknown]
  - Constipation [Unknown]
  - Peripheral vascular disorder [Unknown]
  - Thrombocytopenia [Unknown]
  - Hypotension [Unknown]
  - Pain in extremity [Unknown]
  - Traumatic intracranial haemorrhage [Recovered/Resolved]
  - Dyspnoea exertional [Unknown]

NARRATIVE: CASE EVENT DATE: 20160819
